FAERS Safety Report 25017975 (Version 1)
Quarter: 2025Q1

REPORT INFORMATION
  Report Type: Report from Study
  Country: US (occurrence: US)
  Receive Date: 20250227
  Receipt Date: 20250227
  Transmission Date: 20250409
  Serious: Yes (Death, Other)
  Sender: ACADIA PHARMACEUTICALS
  Company Number: US-ACADIA PHARMACEUTICALS INC.-ACA-2025-PIM-001431

PATIENT
  Age: 83 Year
  Sex: Male

DRUGS (30)
  1. NUPLAZID [Suspect]
     Active Substance: PIMAVANSERIN TARTRATE
     Indication: Parkinson^s disease
     Dosage: 34 MILLIGRAM, QD
     Route: 048
     Dates: start: 20210323, end: 20241226
  2. KENALOG [Concomitant]
     Active Substance: TRIAMCINOLONE ACETONIDE
  3. LIDOCAINE [Concomitant]
     Active Substance: LIDOCAINE
  4. AMLODIPINE [Concomitant]
     Active Substance: AMLODIPINE BESYLATE
  5. CARBIDOPA\LEVODOPA [Concomitant]
     Active Substance: CARBIDOPA\LEVODOPA
  6. CLOPIDOGREL [Concomitant]
     Active Substance: CLOPIDOGREL BISULFATE
  7. BETAMETHASONE DIPROPIONATE\CLOTRIMAZOLE [Concomitant]
     Active Substance: BETAMETHASONE DIPROPIONATE\CLOTRIMAZOLE
  8. DESONIDE [Concomitant]
     Active Substance: DESONIDE
  9. DIPHENHYDRAMINE [Concomitant]
     Active Substance: DIPHENHYDRAMINE
  10. DONEPEZIL [Concomitant]
     Active Substance: DONEPEZIL
  11. ESCITALOPRAM [Concomitant]
     Active Substance: ESCITALOPRAM OXALATE
  12. FLUTICASONE [Concomitant]
     Active Substance: FLUTICASONE
  13. HYDRALAZINE [Concomitant]
     Active Substance: HYDRALAZINE HYDROCHLORIDE
  14. HYDROCORTISONE [Concomitant]
     Active Substance: HYDROCORTISONE
  15. HYDROXYZINE [Concomitant]
     Active Substance: HYDROXYZINE HYDROCHLORIDE
  16. HYOSCYAMINE [Concomitant]
     Active Substance: HYOSCYAMINE
  17. KETOCONAZOLE [Concomitant]
     Active Substance: KETOCONAZOLE
  18. LORAZEPAM [Concomitant]
     Active Substance: LORAZEPAM
  19. MOMETASONE [Concomitant]
     Active Substance: MOMETASONE
  20. DEXAMETHASONE\NEOMYCIN SULFATE\POLYMYXIN B SULFATE [Concomitant]
     Active Substance: DEXAMETHASONE\NEOMYCIN SULFATE\POLYMYXIN B SULFATE
  21. NITROGLYCERIN [Concomitant]
     Active Substance: NITROGLYCERIN
  22. NYSTOP [Concomitant]
     Active Substance: NYSTATIN
  23. OMEPRAZOLE [Concomitant]
     Active Substance: OMEPRAZOLE
  24. OXYCODONE AND ACETAMINOPHEN [Concomitant]
     Active Substance: ACETAMINOPHEN\OXYCODONE HYDROCHLORIDE
  25. PREDNISONE [Concomitant]
     Active Substance: PREDNISONE
  26. QUETIAPINE [Concomitant]
     Active Substance: QUETIAPINE
  27. RIVASTIGMINE [Concomitant]
     Active Substance: RIVASTIGMINE
  28. TAMSULOSIN [Concomitant]
     Active Substance: TAMSULOSIN
  29. DEXAMETHASONE\TOBRAMYCIN [Concomitant]
     Active Substance: DEXAMETHASONE\TOBRAMYCIN
  30. TRIAMTERENE [Concomitant]
     Active Substance: TRIAMTERENE

REACTIONS (1)
  - Death [Fatal]

NARRATIVE: CASE EVENT DATE: 20241226
